FAERS Safety Report 6145737-1 (Version None)
Quarter: 2009Q2

REPORT INFORMATION
  Report Type: 
  Country: None (occurrence: None)
  Receive Date: 20090406
  Receipt Date: 20090406
  Transmission Date: 20091009
  Serious: Yes (Death)
  Sender: FDA-Public Use
  Company Number: None

PATIENT
  Age: 27 Year
  Sex: Female

DRUGS (1)
  1. DURAGESIC-50 [Suspect]
     Dates: start: 20090203, end: 20090207

REACTIONS (1)
  - OVERDOSE [None]
